FAERS Safety Report 4864933-4 (Version None)
Quarter: 2005Q4

REPORT INFORMATION
  Report Type: 
  Country: None (occurrence: None)
  Receive Date: 20051201
  Receipt Date: 20050802
  Transmission Date: 20060501
  Serious: No
  Sender: FDA-Public Use
  Company Number: 2005PV000743

PATIENT
  Age: 43 Year
  Sex: Male
  Weight: 120.43 kg

DRUGS (18)
  1. BYETTA [Suspect]
     Indication: DIABETES MELLITUS
     Dosage: SEE IMAGE
     Route: 058
     Dates: start: 20050501
  2. METHOTREXATE [Concomitant]
  3. SYNTHROID [Concomitant]
  4. FLUDROCORTISONE [Concomitant]
  5. PREDNISONE [Concomitant]
  6. CELEBREX [Concomitant]
  7. GABITRIL [Concomitant]
  8. ZOLOFT [Concomitant]
  9. PREVACID [Concomitant]
  10. LANTUS [Concomitant]
  11. HUMALOG [Concomitant]
  12. VITAMIN B-12 [Concomitant]
  13. FOLIC ACID [Concomitant]
  14. AVANDIA [Concomitant]
  15. MAGNESIUM [Concomitant]
  16. POTASSIUM [Concomitant]
  17. DHEA [Concomitant]
  18. NEURONTIN [Concomitant]

REACTIONS (4)
  - DRUG EFFECT DECREASED [None]
  - NAUSEA [None]
  - THERAPEUTIC RESPONSE UNEXPECTED [None]
  - WEIGHT DECREASED [None]
